FAERS Safety Report 4827198-5 (Version None)
Quarter: 2005Q4

REPORT INFORMATION
  Report Type: 
  Country: None (occurrence: None)
  Receive Date: 20051014
  Receipt Date: 20050901
  Transmission Date: 20060501
  Serious: No
  Sender: FDA-Public Use
  Company Number: 2005SP002610

PATIENT
  Age: 83 Year
  Sex: Male

DRUGS (4)
  1. LUNESTA [Suspect]
     Dosage: 3 MG; HS; ORAL
     Route: 048
     Dates: start: 20050701
  2. LOMOTIL [Concomitant]
  3. ASPIRIN [Concomitant]
  4. QUININE [Concomitant]

REACTIONS (1)
  - DRUG EFFECT DECREASED [None]
